FAERS Safety Report 21263938 (Version 3)
Quarter: 2022Q3

REPORT INFORMATION
  Report Type: Spontaneous
  Country: US (occurrence: US)
  Receive Date: 20220829
  Receipt Date: 20220923
  Transmission Date: 20221026
  Serious: Yes (Hospitalization, Other)
  Sender: FDA-Public Use
  Company Number: US-SAREPTA THERAPEUTICS INC.-SRP2022-002453

PATIENT
  Age: 25 Year
  Sex: Male
  Weight: 49.9 kg

DRUGS (5)
  1. EXONDYS 51 [Suspect]
     Active Substance: ETEPLIRSEN
     Indication: Duchenne muscular dystrophy
     Dosage: 1500 MILLIGRAM, WEEKLY
     Route: 042
     Dates: start: 2017, end: 202207
  2. ASPIRIN [Concomitant]
     Active Substance: ASPIRIN
     Indication: Heart transplant
     Dosage: 81 MILLIGRAM
     Dates: start: 2013
  3. LISINOPRIL [Concomitant]
     Active Substance: LISINOPRIL
     Indication: Duchenne muscular dystrophy
     Dosage: 5 MILLIGRAM
     Dates: start: 2013
  4. PREDNISONE [Concomitant]
     Active Substance: PREDNISONE
     Indication: Duchenne muscular dystrophy
     Dosage: 10 MILLIGRAM
     Dates: start: 2009
  5. TACROLIMUS [Concomitant]
     Active Substance: TACROLIMUS
     Indication: Heart transplant
     Dosage: 1.5 MILLIGRAM
     Dates: start: 2013

REACTIONS (2)
  - Vascular pseudoaneurysm [Recovered/Resolved]
  - Vascular pseudoaneurysm thrombosis [Recovered/Resolved]

NARRATIVE: CASE EVENT DATE: 20220802
